FAERS Safety Report 5006452-0 (Version None)
Quarter: 2006Q2

REPORT INFORMATION
  Report Type: 
  Country: None (occurrence: None)
  Receive Date: 20060519
  Receipt Date: 20060505
  Transmission Date: 20061013
  Serious: Yes (Hospitalization)
  Sender: FDA-Public Use
  Company Number: US-AVENTIS-200614876GDDC

PATIENT
  Age: 63 Year
  Sex: Male
  Weight: 106.14 kg

DRUGS (14)
  1. TAXOTERE [Suspect]
     Indication: PROSTATE CANCER
     Route: 042
     Dates: start: 20060427, end: 20060427
  2. DOXIL [Suspect]
     Indication: PROSTATE CANCER
     Route: 042
     Dates: start: 20060427, end: 20060427
  3. METOCLOPRAMIDE [Concomitant]
     Dosage: DOSE: UNK
  4. LISINOPRIL W/HYDROCHLOROTHIAZIDE [Concomitant]
     Dosage: DOSE: UNK
  5. NIFEDIPINE [Concomitant]
     Dosage: DOSE: UNK
  6. FUROSEMIDE [Concomitant]
     Dosage: DOSE: UNK
  7. HYDROCORTISONE [Concomitant]
     Dosage: DOSE: UNK
  8. SERUMLIPIDREDUCING AGENTS [Concomitant]
     Dosage: DOSE: UNK
  9. CENTRUM SILVER [Concomitant]
     Dosage: DOSE: UNK
  10. PROTONIX [Concomitant]
     Dosage: DOSE: UNK
  11. INSULIN INSULATARD NPH NORDISK [Concomitant]
     Dosage: DOSE: UNK
  12. R INSULIN [Concomitant]
     Dosage: DOSE: UNK
  13. COMPAZINE [Concomitant]
     Dosage: DOSE: UNK
  14. PROMETHAZINE [Concomitant]
     Dosage: DOSE: UNK

REACTIONS (5)
  - BLOOD CREATININE INCREASED [None]
  - BLOOD GLUCOSE INCREASED [None]
  - BLOOD UREA INCREASED [None]
  - NAUSEA [None]
  - VOMITING [None]
